FAERS Safety Report 24220069 (Version 4)
Quarter: 2025Q4

REPORT INFORMATION
  Report Type: Spontaneous
  Country: EU (occurrence: EU)
  Receive Date: 20240817
  Receipt Date: 20251127
  Transmission Date: 20260118
  Serious: Yes (Death, Hospitalization, Other)
  Sender: AUROBINDO
  Company Number: EU-ASTELLAS-2021US022517

PATIENT
  Age: 68 Year
  Sex: Male

DRUGS (39)
  1. BENDAMUSTINE HYDROCHLORIDE [Suspect]
     Active Substance: BENDAMUSTINE HYDROCHLORIDE
     Indication: Follicular lymphoma stage IV
     Dosage: UNK UNK, CYCLICAL
  2. BENDAMUSTINE HYDROCHLORIDE [Suspect]
     Active Substance: BENDAMUSTINE HYDROCHLORIDE
     Dosage: UNK UNK, CYCLICAL
  3. ANAKINRA [Suspect]
     Active Substance: ANAKINRA
     Indication: Stomatitis
     Dosage: 100 MILLIGRAM, ONCE A DAY (D203)
  4. ANAKINRA [Suspect]
     Active Substance: ANAKINRA
     Indication: Dry eye
     Dosage: 100 MILLIGRAM, ONCE A DAY
  5. ANAKINRA [Suspect]
     Active Substance: ANAKINRA
     Indication: Dermatitis
     Dosage: UNK
     Route: 065
  6. ANAKINRA [Suspect]
     Active Substance: ANAKINRA
     Indication: Immunosuppressant drug therapy
  7. CYCLOSPORINE [Suspect]
     Active Substance: CYCLOSPORINE
     Indication: Immunosuppressant drug therapy
     Dosage: UNK
     Route: 065
  8. CYCLOSPORINE [Suspect]
     Active Substance: CYCLOSPORINE
     Indication: Stomatitis
  9. CYCLOSPORINE [Suspect]
     Active Substance: CYCLOSPORINE
     Indication: Dermatitis
  10. CYCLOSPORINE [Suspect]
     Active Substance: CYCLOSPORINE
     Indication: Dry eye
  11. INFLIXIMAB [Suspect]
     Active Substance: INFLIXIMAB
     Indication: Dry eye
     Dosage: 850 MILLIGRAM, EVERY WEEK (425 MG, TWICE WEEKLY (D112))
  12. INFLIXIMAB [Suspect]
     Active Substance: INFLIXIMAB
     Indication: Dermatitis
     Dosage: 425 MILLIGRAM, EVERY 2 WEEK
  13. INFLIXIMAB [Suspect]
     Active Substance: INFLIXIMAB
     Indication: Stomatitis
     Dosage: UNK
     Route: 065
  14. INFLIXIMAB [Suspect]
     Active Substance: INFLIXIMAB
     Indication: Immunosuppressant drug therapy
  15. PREDNISOLONE [Suspect]
     Active Substance: PREDNISOLONE
     Indication: Dry eye
     Dosage: 60 MILLIGRAM, ONCE A DAY
     Route: 065
  16. PREDNISOLONE [Suspect]
     Active Substance: PREDNISOLONE
     Indication: Dermatitis
     Dosage: 80 MILLIGRAM, ONCE A DAY
     Route: 065
  17. PREDNISOLONE [Suspect]
     Active Substance: PREDNISOLONE
     Indication: Stomatitis
     Dosage: 90 MILLIGRAM, ONCE A DAY
     Route: 065
  18. PREDNISOLONE [Suspect]
     Active Substance: PREDNISOLONE
     Indication: Immunosuppressant drug therapy
     Dosage: 10 MILLIGRAM, ONCE A DAY (D77)
  19. PREDNISOLONE [Suspect]
     Active Substance: PREDNISOLONE
     Dosage: 100 MILLIGRAM, ONCE A DAY (D84) (D164)(78) (D106) (D107)
  20. PREDNISOLONE [Suspect]
     Active Substance: PREDNISOLONE
     Dosage: 20 MILLIGRAM, ONCE A DAY (D86-100)
  21. PREDNISOLONE [Suspect]
     Active Substance: PREDNISOLONE
     Dosage: 180 MILLIGRAM, TOTAL DOSE (D106)
  22. PREDNISOLONE [Suspect]
     Active Substance: PREDNISOLONE
     Dosage: 40 MILLIGRAM, ONCE A DAY (D118-152)
     Route: 065
  23. PREDNISOLONE [Suspect]
     Active Substance: PREDNISOLONE
     Dosage: 30 MILLIGRAM, ONCE A DAY (D159)
     Route: 065
  24. PREDNISOLONE [Suspect]
     Active Substance: PREDNISOLONE
     Dosage: 50 MILLIGRAM, ONCE A DAY (D161)
     Route: 065
  25. PREDNISOLONE [Suspect]
     Active Substance: PREDNISOLONE
     Dosage: 70 MILLIGRAM, ONCE A DAY (D173-179)
     Route: 065
  26. PREDNISOLONE [Suspect]
     Active Substance: PREDNISOLONE
     Dosage: 5 MILLIGRAM, ONCE A DAY (D186-239)
     Route: 065
  27. PREDNISOLONE [Suspect]
     Active Substance: PREDNISOLONE
     Dosage: 100 MILLIGRAM, ONCE A DAY
  28. POLATUZUMAB VEDOTIN [Suspect]
     Active Substance: POLATUZUMAB VEDOTIN
     Indication: Follicular lymphoma stage IV
     Dosage: 1.8 MILLIGRAM/KILOGRAM, CYCLICAL (D1 OF C1-6)
     Route: 065
  29. TACROLIMUS [Suspect]
     Active Substance: TACROLIMUS
     Indication: Immunosuppressant drug therapy
     Dosage: 1 MILLIGRAM, ONCE A DAY ( 4-6 UG/L)
  30. TACROLIMUS [Suspect]
     Active Substance: TACROLIMUS
     Indication: Dry eye
     Dosage: 1 MILLIGRAM, ONCE A DAY (D164)
  31. TACROLIMUS [Suspect]
     Active Substance: TACROLIMUS
     Indication: Stomatitis
  32. TACROLIMUS [Suspect]
     Active Substance: TACROLIMUS
     Indication: Dermatitis
  33. OBINUTUZUMAB [Suspect]
     Active Substance: OBINUTUZUMAB
     Indication: Follicular lymphoma stage IV
     Dosage: 1000 MILLIGRAM, CYCLICAL  (D1, D8, D15 OF C1; D1 OF C2-6)
     Route: 065
  34. OBINUTUZUMAB [Suspect]
     Active Substance: OBINUTUZUMAB
     Indication: Lymphoma
  35. VENETOCLAX [Suspect]
     Active Substance: VENETOCLAX
     Indication: Follicular lymphoma stage IV
     Dosage: UNK
     Route: 065
  36. VENETOCLAX [Suspect]
     Active Substance: VENETOCLAX
     Indication: Lymphoma
  37. RITUXIMAB [Suspect]
     Active Substance: RITUXIMAB
     Indication: Follicular lymphoma stage IV
     Dosage: UNK
     Route: 065
  38. RITUXIMAB [Suspect]
     Active Substance: RITUXIMAB
     Dosage: UNK
     Route: 065
  39. ATEZOLIZUMAB [Suspect]
     Active Substance: ATEZOLIZUMAB
     Indication: Follicular lymphoma stage IV
     Dosage: 1200 MILLIGRAM, CYCLICAL  (D1 OF C2-6)
     Route: 065

REACTIONS (14)
  - Death [Fatal]
  - Erysipelas [Recovered/Resolved]
  - Oral fungal infection [Recovered/Resolved]
  - Viral infection [Recovered/Resolved]
  - Bronchopulmonary aspergillosis [Recovered/Resolved]
  - Bacteraemia [Recovered/Resolved]
  - Stomatitis [Unknown]
  - Dry eye [Unknown]
  - Dermatitis [Unknown]
  - Rebound effect [Unknown]
  - Opportunistic infection [Unknown]
  - Immune system disorder [Unknown]
  - Off label use [Recovered/Resolved]
  - Product use in unapproved indication [Unknown]
